FAERS Safety Report 16464165 (Version 1)
Quarter: 2019Q3

REPORT INFORMATION
  Report Type: Spontaneous
  Country: US (occurrence: US)
  Receive Date: 20190620
  Receipt Date: 20190620
  Transmission Date: 20191004
  Serious: Yes (Life-Threatening, Hospitalization, Disabling, Other)
  Sender: FDA-Public Use
  Company Number: None

PATIENT
  Age: 16 Year
  Sex: Male
  Weight: 96.75 kg

DRUGS (4)
  1. ADDERALL [Concomitant]
     Active Substance: AMPHETAMINE ASPARTATE\AMPHETAMINE SULFATE\DEXTROAMPHETAMINE SACCHARATE\DEXTROAMPHETAMINE SULFATE
  2. METHYLPHENIDATE HYDROCHLORIDE. [Suspect]
     Active Substance: METHYLPHENIDATE HYDROCHLORIDE
     Indication: NARCOLEPSY
     Dosage: ?          QUANTITY:48 TABLET(S);?
     Route: 048
     Dates: start: 20170703, end: 20170706
  3. XYREM [Concomitant]
     Active Substance: SODIUM OXYBATE
  4. METHYLPHENIDATE HYDROCHLORIDE. [Suspect]
     Active Substance: METHYLPHENIDATE HYDROCHLORIDE
     Indication: NARCOLEPSY
     Dosage: ?          QUANTITY:48 TABLET(S);?
     Route: 048
     Dates: start: 20170710, end: 20170817

REACTIONS (4)
  - Rash generalised [None]
  - Product substitution issue [None]
  - Pain [None]
  - Therapeutic product effect variable [None]

NARRATIVE: CASE EVENT DATE: 20170815
